FAERS Safety Report 8368607-7 (Version None)
Quarter: 2012Q2

REPORT INFORMATION
  Report Type: 
  Country: None (occurrence: None)
  Receive Date: 20120518
  Receipt Date: 20120510
  Transmission Date: 20120825
  Serious: No
  Sender: FDA-Public Use
  Company Number: US-BIOGENIDEC-2012BI015706

PATIENT
  Age: 45 Year
  Sex: Female

DRUGS (2)
  1. TYSABRI [Suspect]
     Indication: MULTIPLE SCLEROSIS
     Route: 042
     Dates: start: 20050301, end: 20050301
  2. TYSABRI [Suspect]
     Route: 042
     Dates: start: 20120420

REACTIONS (6)
  - ABDOMINAL PAIN UPPER [None]
  - FATIGUE [None]
  - HYPOAESTHESIA [None]
  - ARTHRALGIA [None]
  - DYSSTASIA [None]
  - PAIN IN EXTREMITY [None]
